FAERS Safety Report 5125478-X (Version None)
Quarter: 2006Q3

REPORT INFORMATION
  Report Type: 
  Country: None (occurrence: None)
  Receive Date: 20060822
  Receipt Date: 20060706
  Transmission Date: 20061208
  Serious: No
  Sender: FDA-Public Use
  Company Number: PHEH2006US08661

PATIENT
  Age: 85 Year
  Sex: Female

DRUGS (1)
  1. ENABLEX [Suspect]
     Indication: HYPERTONIC BLADDER
     Dosage: 7.5 MG, QD
     Dates: start: 20060704

REACTIONS (4)
  - DRY MOUTH [None]
  - HEADACHE [None]
  - NASAL CONGESTION [None]
  - THROAT IRRITATION [None]
